FAERS Safety Report 7945936-X (Version None)
Quarter: 2011Q4

REPORT INFORMATION
  Report Type: 
  Country: None (occurrence: None)
  Receive Date: 20111129
  Receipt Date: 20111121
  Transmission Date: 20120403
  Serious: Yes (Other)
  Sender: FDA-Public Use
  Company Number: PHEH2007US05368

PATIENT
  Sex: Female
  Weight: 68 kg

DRUGS (32)
  1. PROVERA [Suspect]
     Dosage: 10 MG, UNK
     Dates: start: 19901126
  2. CYCRIN [Suspect]
     Indication: MENOPAUSE
     Dosage: 2.5 MG, UNK
     Route: 065
     Dates: start: 19971117, end: 19971217
  3. PREMPRO [Suspect]
  4. HORMONES [Suspect]
     Indication: MENOPAUSE
     Route: 061
     Dates: start: 19910101
  5. METHOTREXATE [Concomitant]
     Indication: RHEUMATOID ARTHRITIS
  6. ASPIRIN [Concomitant]
     Dosage: 81 MG, UNK
  7. NAPROXEN (ALEVE) [Concomitant]
     Dosage: 220 MG, UNK
  8. OGEN [Suspect]
  9. MAGNESIUM SULFATE [Concomitant]
  10. PLAVIX [Concomitant]
  11. MACRODANTIN [Concomitant]
     Dosage: 50 MG, UNK
  12. PROVERA [Suspect]
     Route: 065
     Dates: start: 19910101
  13. PREMARIN [Suspect]
     Indication: MENOPAUSE
     Dosage: 0.625 MG, UNK
     Dates: start: 19901126, end: 20001101
  14. PREMARIN [Suspect]
     Indication: MENOPAUSE
     Route: 061
     Dates: start: 19920311, end: 19971123
  15. TAMOXIFEN CITRATE [Concomitant]
     Indication: BREAST CANCER
     Dosage: 10 MG, BID
  16. ZANTAC [Concomitant]
  17. PREVACID [Concomitant]
     Dosage: 30 MG, UNK
  18. FLUCONAZOLE [Concomitant]
     Dosage: 150 MG, UNK
  19. ESTRADERM [Suspect]
     Dosage: 0.05 MG, BIW
     Route: 062
     Dates: start: 19920311, end: 19930311
  20. PAXIL [Concomitant]
     Indication: DEPRESSION
  21. PREMARIN [Suspect]
     Dates: start: 19880101, end: 19910101
  22. PREDNISONE [Concomitant]
     Indication: RHEUMATOID ARTHRITIS
     Dates: start: 19880101, end: 19910101
  23. FOLIC ACID [Concomitant]
  24. MEDROXYPROGESTERONE [Suspect]
     Indication: MENOPAUSE
     Route: 065
     Dates: start: 19910101
  25. ZOLOFT [Concomitant]
     Indication: DEPRESSION
  26. CALCIUM CARBONATE [Concomitant]
  27. PROVERA [Suspect]
     Indication: MENOPAUSE
     Route: 065
     Dates: start: 19880101, end: 19910101
  28. PROVERA [Suspect]
     Dosage: 2.5 MG, UNK
     Route: 065
     Dates: end: 20001101
  29. CLIMARA [Suspect]
     Route: 062
  30. FOSAMAX [Concomitant]
  31. TRICOR [Concomitant]
  32. ESTRADERM [Suspect]
     Indication: MENOPAUSE
     Dates: start: 19910101, end: 19930311

REACTIONS (24)
  - BREAST HYPERPLASIA [None]
  - VISUAL IMPAIRMENT [None]
  - OVARIAN CYST [None]
  - CERVICAL DYSPLASIA [None]
  - CHEST PAIN [None]
  - ARTERIOSCLEROSIS [None]
  - BREAST CANCER [None]
  - BREAST MASS [None]
  - PELVIC PAIN [None]
  - AORTIC STENOSIS [None]
  - ABDOMINAL PAIN [None]
  - DIZZINESS [None]
  - FIBROCYSTIC BREAST DISEASE [None]
  - UTERINE LEIOMYOMA [None]
  - HIATUS HERNIA [None]
  - RECTOCELE [None]
  - DEPRESSION [None]
  - AMNESIA [None]
  - FATIGUE [None]
  - DYSPEPSIA [None]
  - CHRONIC OBSTRUCTIVE PULMONARY DISEASE [None]
  - CARDIAC MURMUR [None]
  - LIVER FUNCTION TEST ABNORMAL [None]
  - NAUSEA [None]
